FAERS Safety Report 8785444 (Version 2)
Quarter: 2012Q4

REPORT INFORMATION
  Report Type: 
  Country: IT (occurrence: IT)
  Receive Date: 20120914
  Receipt Date: 20120917
  Transmission Date: 20130627
  Serious: Yes (Other)
  Sender: FDA-Public Use
  Company Number: IT-JNJFOC-20120901440

PATIENT

DRUGS (2)
  1. QUIXIL [Suspect]
     Indication: HAEMOSTASIS
     Dosage: half of 5 ml of each product component, corresponding to half of the kit
     Route: 061
  2. UNSPECIFIED INGREDIENT [Suspect]
     Indication: HAEMOSTASIS
     Route: 050

REACTIONS (1)
  - Haematoma [Unknown]
